FAERS Safety Report 9581409 (Version 1)
Quarter: 2013Q4

REPORT INFORMATION
  Report Type: Spontaneous
  Country: DE (occurrence: DE)
  Receive Date: 20131002
  Receipt Date: 20131002
  Transmission Date: 20140711
  Serious: Yes (Life-Threatening, Hospitalization, Other)
  Sender: FDA-Public Use
  Company Number: DE-BRISTOL-MYERS SQUIBB COMPANY-19458975

PATIENT
  Age: 72 Year
  Sex: Male

DRUGS (11)
  1. ERBITUX SOLN FOR INF [Suspect]
     Indication: COLORECTAL CANCER METASTATIC
     Route: 042
  2. IRINOTECAN [Concomitant]
     Route: 042
     Dates: start: 20130819, end: 20130902
  3. RIVAROXABAN [Concomitant]
     Dates: start: 201308
  4. PANTOZOL [Concomitant]
  5. TAVEGIL [Concomitant]
  6. DEXAMETHASONE [Concomitant]
     Indication: PREMEDICATION
  7. GRANISETRON [Concomitant]
     Indication: PREMEDICATION
  8. AVASTIN [Concomitant]
     Dates: start: 20130902
  9. 5-FLUOROURACIL [Concomitant]
     Route: 042
     Dates: start: 20130819, end: 20130902
  10. FOLINIC ACID [Concomitant]
     Dates: start: 20130819, end: 20130902
  11. CALCIUM FOLINATE [Concomitant]

REACTIONS (3)
  - Anaphylactic shock [Recovered/Resolved]
  - Convulsion [Recovered/Resolved]
  - Aspiration [Recovered/Resolved]
